FAERS Safety Report 26142621 (Version 1)
Quarter: 2025Q4

REPORT INFORMATION
  Report Type: Spontaneous
  Country: CA (occurrence: CA)
  Receive Date: 20251211
  Receipt Date: 20251211
  Transmission Date: 20260117
  Serious: Yes (Other)
  Sender: Haleon PLC
  Company Number: CA-HALEON-2278620

PATIENT
  Age: 34 Year
  Sex: Female
  Weight: 70 kg

DRUGS (17)
  1. FLONASE ALLERGY RELIEF [Suspect]
     Active Substance: FLUTICASONE PROPIONATE
     Indication: Product used for unknown indication
     Dosage: ROUTE: UNKNOWN
  2. ADVAIR HFA [Suspect]
     Active Substance: FLUTICASONE PROPIONATE\SALMETEROL XINAFOATE
     Indication: Product used for unknown indication
     Dosage: ROUTE: UNKNOWN
  3. BREO ELLIPTA [Suspect]
     Active Substance: FLUTICASONE FUROATE\VILANTEROL TRIFENATATE
     Indication: Product used for unknown indication
     Dosage: DOSE FORM: INHALATION
  4. BUDESONIDE\FORMOTEROL [Suspect]
     Active Substance: BUDESONIDE\FORMOTEROL
     Indication: Product used for unknown indication
  5. CETIRIZINE HYDROCHLORIDE [Suspect]
     Active Substance: CETIRIZINE HYDROCHLORIDE
     Indication: Product used for unknown indication
  6. ERGOCALCIFEROL [Suspect]
     Active Substance: ERGOCALCIFEROL
     Indication: Product used for unknown indication
  7. NORGESTIMATE [Suspect]
     Active Substance: NORGESTIMATE
     Indication: Product used for unknown indication
  8. NUCALA [Suspect]
     Active Substance: MEPOLIZUMAB
     Indication: Asthma
  9. NUCALA [Suspect]
     Active Substance: MEPOLIZUMAB
     Indication: Hypereosinophilic syndrome
  10. NUCALA [Suspect]
     Active Substance: MEPOLIZUMAB
  11. NUCALA [Suspect]
     Active Substance: MEPOLIZUMAB
  12. PREDNISONE [Suspect]
     Active Substance: PREDNISONE
     Indication: Product used for unknown indication
  13. CETIRIZINE HYDROCHLORIDE [Suspect]
     Active Substance: CETIRIZINE HYDROCHLORIDE
     Indication: Product used for unknown indication
  14. SINGULAIR [Suspect]
     Active Substance: MONTELUKAST SODIUM
     Indication: Product used for unknown indication
     Dosage: ROUTE: UNK
  15. SINGULAIR [Suspect]
     Active Substance: MONTELUKAST SODIUM
     Route: 048
  16. UMECLIDINIUM BROMIDE\VILANTEROL TRIFENATATE [Suspect]
     Active Substance: UMECLIDINIUM BROMIDE\VILANTEROL TRIFENATATE
     Indication: Product used for unknown indication
     Dosage: ROUTE: UNKNOWN
  17. ALBUTEROL [Suspect]
     Active Substance: ALBUTEROL
     Indication: Product used for unknown indication

REACTIONS (12)
  - Angioedema [Unknown]
  - Rhinorrhoea [Unknown]
  - Vitamin D deficiency [Unknown]
  - Ear pruritus [Unknown]
  - Full blood count abnormal [Unknown]
  - Therapeutic product effect incomplete [Unknown]
  - Paranasal sinus discomfort [Unknown]
  - Urticaria [Unknown]
  - Asthma [Unknown]
  - Rhinitis allergic [Unknown]
  - Conjunctivitis allergic [Unknown]
  - Chronic sinusitis [Unknown]
